FAERS Safety Report 5326863-3 (Version None)
Quarter: 2007Q2

REPORT INFORMATION
  Report Type: 
  Country: None (occurrence: None)
  Receive Date: 20070511
  Receipt Date: 20070430
  Transmission Date: 20071010
  Serious: Yes (Other)
  Sender: FDA-Public Use
  Company Number: 154318ISR

PATIENT
  Age: 31 Year
  Sex: Female

DRUGS (4)
  1. COPAXONE [Suspect]
     Indication: MULTIPLE SCLEROSIS
     Dosage: 20 MG (20 MG, 1 IN 1 D)
     Route: 058
     Dates: start: 20070308, end: 20070317
  2. INSULIN HUMAN [Concomitant]
  3. INSULIN ASPART [Concomitant]
  4. INSUMAN COMB [Concomitant]

REACTIONS (2)
  - DIABETES MELLITUS INADEQUATE CONTROL [None]
  - HYPERGLYCAEMIA [None]
